FAERS Safety Report 24592367 (Version 1)
Quarter: 2024Q4

REPORT INFORMATION
  Report Type: Report from Study
  Country: CL (occurrence: CL)
  Receive Date: 20241108
  Receipt Date: 20241108
  Transmission Date: 20250115
  Serious: Yes (Other)
  Sender: RIGEL PHARMACEUTICALS
  Company Number: CL-ROCHE-10000117096

PATIENT
  Age: 66 Year
  Sex: Female

DRUGS (1)
  1. PRALSETINIB [Suspect]
     Active Substance: PRALSETINIB
     Indication: Lung carcinoma cell type unspecified stage IV
     Dosage: 100 MG, 4 PILLS A DAY FOR 1 MONTH
     Route: 048
     Dates: start: 20231202, end: 20240329

REACTIONS (2)
  - Lung neoplasm [Not Recovered/Not Resolved]
  - Back pain [Unknown]

NARRATIVE: CASE EVENT DATE: 20240708
